FAERS Safety Report 6550571-4 (Version None)
Quarter: 2010Q1

REPORT INFORMATION
  Report Type: 
  Country: None (occurrence: None)
  Receive Date: 20100122
  Receipt Date: 20100122
  Transmission Date: 20100710
  Serious: Yes (Life-Threatening, Hospitalization, Other)
  Sender: FDA-Public Use
  Company Number: None

PATIENT
  Age: 56 Year
  Sex: Male
  Weight: 97.5 kg

DRUGS (6)
  1. TYLENOL (CAPLET) [Suspect]
     Indication: MALAISE
     Dosage: 500 MG FIVE TIMES A DAY PO
     Route: 048
     Dates: start: 20091216, end: 20091218
  2. QUINAPRIL [Concomitant]
  3. SPIRONOLACTONE [Concomitant]
  4. SIMVASTATIN [Concomitant]
  5. ALLOPURINOL [Concomitant]
  6. COREG [Concomitant]

REACTIONS (4)
  - ABDOMINAL PAIN [None]
  - BLOOD PRESSURE SYSTOLIC DECREASED [None]
  - HYPOTENSION [None]
  - JAUNDICE [None]
